FAERS Safety Report 24042947 (Version 1)
Quarter: 2024Q3

REPORT INFORMATION
  Report Type: Spontaneous
  Country: US (occurrence: US)
  Receive Date: 20240702
  Receipt Date: 20240702
  Transmission Date: 20241017
  Serious: No
  Sender: SANOFI AVENTIS
  Company Number: US-SA-SAC20240628000156

PATIENT
  Sex: Female

DRUGS (22)
  1. DUPIXENT [Suspect]
     Active Substance: DUPILUMAB
     Indication: Dermatitis atopic
     Dosage: 300 MG, QOW
     Route: 058
     Dates: start: 20211218
  2. ADZENYS XR-ODT [Concomitant]
     Active Substance: AMPHETAMINE
     Dosage: UNK
  3. ALBUTEROL SULFATE [Concomitant]
     Active Substance: ALBUTEROL SULFATE
     Dosage: UNK
  4. AMLODIPINE [Concomitant]
     Active Substance: AMLODIPINE BESYLATE
     Dosage: UNK
  5. AZITHROMYCIN [Concomitant]
     Active Substance: AZITHROMYCIN
     Dosage: UNK
  6. BENSAL [Concomitant]
     Dosage: UNK
  7. CLOBETASOL [Concomitant]
     Active Substance: CLOBETASOL
     Dosage: UNK
  8. FLUOCINONIDE [Concomitant]
     Active Substance: FLUOCINONIDE
     Dosage: UNK
  9. HALOG [Concomitant]
     Active Substance: HALCINONIDE
     Dosage: UNK
  10. LOSARTAN POTASSIUM [Concomitant]
     Active Substance: LOSARTAN POTASSIUM
     Dosage: UNK
  11. ONDANSETRON [Concomitant]
     Active Substance: ONDANSETRON
     Dosage: UNK
  12. PRAMOSONE [Concomitant]
     Active Substance: HYDROCORTISONE ACETATE\PRAMOXINE HYDROCHLORIDE
     Dosage: UNK
  13. QBREXZA [Concomitant]
     Active Substance: GLYCOPYRRONIUM TOSYLATE
     Dosage: UNK
  14. SITAVIG [Concomitant]
     Active Substance: ACYCLOVIR
     Dosage: UNK
  15. TERBINAFINE [Concomitant]
     Active Substance: TERBINAFINE
     Dosage: UNK
  16. TOBRAMYCIN [Concomitant]
     Active Substance: TOBRAMYCIN\TOBRAMYCIN SULFATE
     Dosage: UNK
  17. TRETINOIN [Concomitant]
     Active Substance: TRETINOIN
     Dosage: UNK
  18. VEREGEN [Concomitant]
     Active Substance: SINECATECHINS
     Dosage: UNK
  19. ADZENYS XR-ODT [Concomitant]
     Active Substance: AMPHETAMINE
     Dosage: UNK
  20. JUNEL FE 1/20 [Concomitant]
     Active Substance: ETHINYL ESTRADIOL\NORETHINDRONE ACETATE
     Dosage: UNK
  21. SLYND [Concomitant]
     Active Substance: DROSPIRENONE
     Dosage: UNK
  22. TOBRAMYCIN AND DEXAMETHASONE [Concomitant]
     Active Substance: DEXAMETHASONE\TOBRAMYCIN
     Dosage: UNK

REACTIONS (1)
  - Drug ineffective [Unknown]
